FAERS Safety Report 6103915-1 (Version None)
Quarter: 2009Q1

REPORT INFORMATION
  Report Type: 
  Country: None (occurrence: None)
  Receive Date: 20090305
  Receipt Date: 20090224
  Transmission Date: 20090719
  Serious: Yes (Congenital Anomaly)
  Sender: FDA-Public Use
  Company Number: A0756637A

PATIENT
  Sex: Female

DRUGS (19)
  1. PAXIL CR [Suspect]
     Indication: DEPRESSION
     Dosage: 12.5MG UNKNOWN
  2. HYDROCHLOROTHIAZIDE [Concomitant]
  3. PREVACID [Concomitant]
  4. PHENERGAN [Concomitant]
  5. DECADRON [Concomitant]
     Dates: start: 20041001
  6. STADOL [Concomitant]
     Dates: start: 20041001
  7. PHENERGAN [Concomitant]
  8. ROCEPHIN [Concomitant]
     Dates: start: 20041016
  9. MAALOX [Concomitant]
  10. EXCEDRIN [Concomitant]
  11. REGLAN [Concomitant]
  12. PERCOCET [Concomitant]
  13. ZOFRAN [Concomitant]
  14. DEMEROL [Concomitant]
  15. DIOVAN HCT [Concomitant]
  16. IMITREX [Concomitant]
  17. LORTAB [Concomitant]
  18. HEMOCYTE [Concomitant]
  19. POTASSIUM CHLORIDE [Concomitant]
     Dates: start: 20050101

REACTIONS (6)
  - ARTERIAL OCCLUSIVE DISEASE [None]
  - CARDIAC DISORDER [None]
  - CARDIAC MURMUR [None]
  - CONGENITAL ANOMALY [None]
  - DRUG EXPOSURE DURING PREGNANCY [None]
  - FALLOT'S TETRALOGY [None]
